FAERS Safety Report 5223626-4 (Version None)
Quarter: 2007Q1

REPORT INFORMATION
  Report Type: 
  Country: None (occurrence: None)
  Receive Date: 20070130
  Receipt Date: 20070119
  Transmission Date: 20070707
  Serious: Yes (Death, Other)
  Sender: FDA-Public Use
  Company Number: GB-JNJFOC-20070105072

PATIENT
  Sex: Male
  Weight: 110 kg

DRUGS (15)
  1. REMICADE [Suspect]
     Indication: DRUG USE FOR UNKNOWN INDICATION
     Route: 042
  2. METHOTREXATE [Concomitant]
     Route: 065
  3. PREDNISOLONE [Concomitant]
     Route: 065
  4. HYDROCORTISONE [Concomitant]
     Route: 065
  5. ALENDRONATE SODIUM [Concomitant]
     Route: 065
  6. BETAHISTINE [Concomitant]
     Route: 065
  7. CALCICHEW [Concomitant]
     Route: 065
  8. CO-AMILOFRUSE [Concomitant]
     Route: 065
  9. FOLIC ACID [Concomitant]
     Route: 065
  10. GTN-SPRAY [Concomitant]
     Route: 065
  11. ISOSORBIDE [Concomitant]
     Route: 065
  12. MOTIVAL [Concomitant]
     Route: 065
  13. QUININE SULFATE [Concomitant]
     Route: 065
  14. RANITIDINE [Concomitant]
     Route: 065
  15. LEVOTHYROXINE SODIUM [Concomitant]
     Route: 065

REACTIONS (1)
  - DEATH [None]
